FAERS Safety Report 15342488 (Version 1)
Quarter: 2018Q3

REPORT INFORMATION
  Report Type: Spontaneous
  Country: US (occurrence: US)
  Receive Date: 20180902
  Receipt Date: 20180902
  Transmission Date: 20181010
  Serious: No
  Sender: FDA-Public Use
  Company Number: US-UNITED THERAPEUTICS-UNT-2018-013807

PATIENT
  Age: 75 Year
  Sex: Male
  Weight: 68.93 kg

DRUGS (3)
  1. TYVASO [Suspect]
     Active Substance: TREPROSTINIL
     Dosage: 30 ?G, UNK
  2. TYVASO [Suspect]
     Active Substance: TREPROSTINIL
     Indication: PULMONARY ARTERIAL HYPERTENSION
     Dosage: 18?54 ?G, QID
     Dates: start: 20180809
  3. SILDENAFIL CITRATE. [Suspect]
     Active Substance: SILDENAFIL CITRATE
     Indication: PRODUCT USED FOR UNKNOWN INDICATION
     Route: 065

REACTIONS (4)
  - Vision blurred [Unknown]
  - Asthenia [Unknown]
  - Somnolence [Unknown]
  - Blood pressure systolic decreased [Unknown]

NARRATIVE: CASE EVENT DATE: 201808
